FAERS Safety Report 18341122 (Version 1)
Quarter: 2020Q4

REPORT INFORMATION
  Report Type: Spontaneous
  Country: PL (occurrence: PL)
  Receive Date: 20201003
  Receipt Date: 20201003
  Transmission Date: 20210113
  Serious: Yes (Other)
  Sender: FDA-Public Use
  Company Number: PL-TEVA-2020-PL-1833677

PATIENT
  Age: 64 Year
  Sex: Male
  Weight: 117 kg

DRUGS (4)
  1. FLUOROURACIL. [Suspect]
     Active Substance: FLUOROURACIL
     Dosage: DOSE: 800; DOSE UNIT: NOT SPECIFIED
     Route: 040
     Dates: start: 20170425, end: 20180313
  2. IRINOTECAN [Suspect]
     Active Substance: IRINOTECAN
     Indication: COLON CANCER
     Dosage: DOSE: 360; DOSE UNIT: NOT SPECIFIED
     Route: 042
     Dates: start: 20170425, end: 20180313
  3. CALCIUM FOLINATE [Suspect]
     Active Substance: LEUCOVORIN CALCIUM
     Indication: COLON CANCER
     Dosage: DOSE: 400; DOSE UNIT: NOT SPECIFIED
     Route: 042
     Dates: start: 20170425, end: 20180313
  4. FLUOROURACIL. [Suspect]
     Active Substance: FLUOROURACIL
     Indication: COLON CANCER
     Route: 041
     Dates: start: 20170425, end: 20180313

REACTIONS (1)
  - Neutropenia [Unknown]

NARRATIVE: CASE EVENT DATE: 20180327
